FAERS Safety Report 8472052-3 (Version None)
Quarter: 2012Q2

REPORT INFORMATION
  Report Type: 
  Country: None (occurrence: None)
  Receive Date: 20120323
  Receipt Date: 20111005
  Transmission Date: 20120825
  Serious: Yes (Other)
  Sender: FDA-Public Use
  Company Number: 163-21880-11100731

PATIENT
  Age: 66 Year
  Sex: Male

DRUGS (8)
  1. REVLIMID [Suspect]
     Indication: MULTIPLE MYELOMA
     Dosage: 10 MG, 1 IN 1 D, PO
     Route: 048
     Dates: start: 20110930
  2. MAGNESIUM HYDROXIDE TAB [Concomitant]
  3. METFFORMIN HYDROCHLORIDE [Concomitant]
  4. COZAAR [Concomitant]
  5. ASPIRIN [Concomitant]
  6. VITAMIN D [Concomitant]
  7. NORVASC [Concomitant]
  8. NEURONTIN [Concomitant]

REACTIONS (4)
  - SWELLING FACE [None]
  - URTICARIA [None]
  - RASH GENERALISED [None]
  - PRURITUS [None]
